FAERS Safety Report 6031739-2 (Version None)
Quarter: 2009Q1

REPORT INFORMATION
  Report Type: 
  Country: None (occurrence: None)
  Receive Date: 20090107
  Receipt Date: 20090107
  Transmission Date: 20090719
  Serious: Yes (Hospitalization)
  Sender: FDA-Public Use
  Company Number: None

PATIENT
  Sex: Female
  Weight: 73.5 kg

DRUGS (2)
  1. CARBOPLATIN [Suspect]
     Indication: BREAST CANCER
     Dosage: AUC=6
     Dates: start: 20081230
  2. ABRAXANE [Suspect]
     Indication: BREAST CANCER
     Dosage: 80MG/M2 = 144MG
     Dates: start: 20081230

REACTIONS (6)
  - BLOOD GLUCOSE INCREASED [None]
  - HAEMATOCRIT DECREASED [None]
  - HAEMOGLOBIN DECREASED [None]
  - HYPOPHAGIA [None]
  - NAUSEA [None]
  - URINARY TRACT INFECTION [None]
